FAERS Safety Report 7199167-4 (Version None)
Quarter: 2010Q4

REPORT INFORMATION
  Report Type: 
  Country: None (occurrence: None)
  Receive Date: 20101228
  Receipt Date: 20101215
  Transmission Date: 20110411
  Serious: Yes (Death, Hospitalization)
  Sender: FDA-Public Use
  Company Number: US-CELGENEUS-163-21880-10041010

PATIENT
  Sex: Male
  Weight: 65.7 kg

DRUGS (5)
  1. REVLIMID [Suspect]
     Route: 048
     Dates: start: 20100126, end: 20100409
  2. MELPHALAN [Suspect]
     Indication: AMYLOIDOSIS
     Route: 048
     Dates: start: 20100126, end: 20100409
  3. DEXAMETHASONE [Suspect]
     Indication: AMYLOIDOSIS
     Route: 048
     Dates: start: 20100126, end: 20100409
  4. LASIX [Suspect]
     Route: 065
  5. ALDACTONE [Concomitant]
     Route: 065

REACTIONS (3)
  - ARRHYTHMIA [None]
  - CONFUSIONAL STATE [None]
  - HYPONATRAEMIA [None]
